FAERS Safety Report 10661159 (Version 2)
Quarter: 2014Q4

REPORT INFORMATION
  Report Type: Spontaneous
  Country: GR (occurrence: GR)
  Receive Date: 20141218
  Receipt Date: 20141218
  Transmission Date: 20150529
  Serious: Yes (Other)
  Sender: FDA-Public Use
  Company Number: GR-009507513-1410GRC001387

PATIENT
  Age: 66 Year
  Sex: Female

DRUGS (3)
  1. OMACOR [Concomitant]
     Active Substance: OMEGA-3-ACID ETHYL ESTERS
     Dosage: UNK
  2. INEGY [Suspect]
     Active Substance: EZETIMIBE\SIMVASTATIN
     Indication: DYSLIPIDAEMIA
     Dosage: 1 TB INEGY 10/20 AND 1 TB INEGY 10/40 ALTERNATIVELY ( ONE DAY 10/20 AND THE NEXT DAY 10/40)
     Route: 048
     Dates: start: 201010
  3. INEGY [Suspect]
     Active Substance: EZETIMIBE\SIMVASTATIN
     Indication: DYSLIPIDAEMIA
     Dosage: 1 TB INEGY 10/20 AND 1 TB INEGY 10/40 ALTERNATIVELY ( ONE DAY 10/20 AND THE NEXT DAY 10/40)
     Route: 048
     Dates: start: 201010

REACTIONS (2)
  - Inappropriate schedule of drug administration [Unknown]
  - Neoplasm malignant [Not Recovered/Not Resolved]

NARRATIVE: CASE EVENT DATE: 2010
